FAERS Safety Report 12195542 (Version 3)
Quarter: 2016Q2

REPORT INFORMATION
  Report Type: Spontaneous
  Country: US (occurrence: US)
  Receive Date: 20160321
  Receipt Date: 20160509
  Transmission Date: 20160815
  Serious: Yes (Hospitalization, Other)
  Sender: FDA-Public Use
  Company Number: US-JNJFOC-20160314801

PATIENT
  Age: 58 Year
  Sex: Female

DRUGS (3)
  1. XARELTO [Suspect]
     Active Substance: RIVAROXABAN
     Indication: DEEP VEIN THROMBOSIS
     Route: 048
     Dates: end: 20160223
  2. XARELTO [Suspect]
     Active Substance: RIVAROXABAN
     Indication: DEEP VEIN THROMBOSIS
     Route: 048
     Dates: start: 20150715
  3. XARELTO [Suspect]
     Active Substance: RIVAROXABAN
     Indication: DEEP VEIN THROMBOSIS
     Route: 048
     Dates: start: 20160229, end: 20160311

REACTIONS (8)
  - Postmenopausal haemorrhage [Unknown]
  - Haematochezia [Recovered/Resolved]
  - Asthenia [Unknown]
  - Loss of consciousness [Unknown]
  - Dyspnoea [Unknown]
  - Diverticulitis [Unknown]
  - Uterine leiomyoma [Unknown]
  - Gastric polyps [Unknown]

NARRATIVE: CASE EVENT DATE: 20151026
